FAERS Safety Report 14962470 (Version 5)
Quarter: 2019Q1

REPORT INFORMATION
  Report Type: Spontaneous
  Country: US (occurrence: US)
  Receive Date: 20180601
  Receipt Date: 20190311
  Transmission Date: 20190417
  Serious: Yes (Other)
  Sender: FDA-Public Use
  Company Number: US-PFIZER INC-2018216677

PATIENT
  Age: 67 Year
  Sex: Female
  Weight: 89 kg

DRUGS (26)
  1. RAMIPRIL. [Concomitant]
     Active Substance: RAMIPRIL
     Indication: HYPERTENSION
     Dosage: 10 MG, 2 TIMES EVERY DAY)
     Route: 048
     Dates: start: 20150225, end: 20150227
  2. ATENOLOL. [Concomitant]
     Active Substance: ATENOLOL
     Dosage: 25 MG, 2X/DAY
     Dates: start: 20171115
  3. HYDROCODONE/ACETAMINOPHEN [Concomitant]
     Active Substance: ACETAMINOPHEN\HYDROCODONE
     Indication: PAIN
     Dosage: 1 DF, AS NEEDED, (HYDROCODONE 5 MG-ACETAMINOPHEN-500MG /TAKE 1 TABLET EVERY 8 HOURS AS NEEDED)
     Route: 048
     Dates: start: 20150225
  4. NORVASC [Suspect]
     Active Substance: AMLODIPINE BESYLATE
     Dosage: 2.5 MG, 2X/DAY, (ONE IN MORNING AND ONE AT NIGHT)
     Route: 048
     Dates: start: 201804, end: 201804
  5. RAMIPRIL. [Concomitant]
     Active Substance: RAMIPRIL
     Dosage: 10 MG, 2X/DAY
     Route: 048
     Dates: start: 20180126
  6. CLONAZEPAM. [Concomitant]
     Active Substance: CLONAZEPAM
     Indication: HYPERTENSION
     Dosage: 0.25 MG, 2X/DAY (0.5 MG CUTS IN HALF AND TAKES 0.25 MG TWICE A DAY)
  7. AMLODIPINE BESYLATE. [Concomitant]
     Active Substance: AMLODIPINE BESYLATE
     Dosage: 1/2 TABLET TWO TIMES A DAY]
     Route: 048
     Dates: start: 20160511
  8. COENZYME Q10 [Concomitant]
     Active Substance: UBIDECARENONE
     Dosage: 100 MG, DAILY
     Route: 048
     Dates: start: 20121211
  9. VITAMIN D3 [Concomitant]
     Active Substance: CHOLECALCIFEROL
     Dosage: 5000 IU, DAILY (EVERY DAY)
     Route: 048
     Dates: start: 20121211
  10. ASPIRIN [ACETYLSALICYLIC ACID] [Concomitant]
     Active Substance: ASPIRIN
     Dosage: 325 MG, DAILY
     Route: 048
     Dates: start: 20121211
  11. EVENING PRIMROSE OIL [Concomitant]
     Active Substance: EVENING PRIMROSE OIL\HERBALS
     Dosage: 500 MG, DAILY
     Route: 048
     Dates: start: 20121211
  12. KLONOPIN [Concomitant]
     Active Substance: CLONAZEPAM
     Indication: ANXIETY
     Dosage: 1.5-2 TABLET EVERY DAY PRN
     Route: 048
     Dates: start: 20131124, end: 20141203
  13. PROBIOTICS [Concomitant]
     Active Substance: PROBIOTICS NOS
     Dosage: TAKE 1 BY ORAL ROUTE)
     Route: 048
     Dates: start: 20150609
  14. ASPIRIN [ACETYLSALICYLIC ACID] [Concomitant]
     Active Substance: ASPIRIN
     Dosage: 0.5 MG, DAILY
     Route: 048
     Dates: start: 20180417
  15. AMLODIPINE BESYLATE. [Concomitant]
     Active Substance: AMLODIPINE BESYLATE
     Dosage: 2.5 MG, 2X/DAY  [TAKE 1/2 TABLET TWO TIMES A DAY]
     Route: 048
     Dates: start: 20150528, end: 20150528
  16. NORVASC [Suspect]
     Active Substance: AMLODIPINE BESYLATE
     Indication: HYPERTENSION
     Dosage: 1/4 TABLET (STRENGTH:2.5MG) TWICE DAILY
     Route: 048
     Dates: start: 20171108, end: 20180215
  17. HYDROCODONE/ACETAMINOPHEN [Concomitant]
     Active Substance: ACETAMINOPHEN\HYDROCODONE
     Dosage: 1 DF, AS NEEDED (ONE TABLET BY MOUTH EVERY 8 HOURS AS NEEDED)
     Route: 048
     Dates: start: 20171103
  18. ATORVASTATIN [Concomitant]
     Active Substance: ATORVASTATIN
     Dosage: 10 MG, DAILY, (TAKE ONE TABLET BY MOUTH EVERY DAY)
     Route: 048
     Dates: start: 20150601, end: 20150601
  19. NORVASC [Suspect]
     Active Substance: AMLODIPINE BESYLATE
     Dosage: 2.5 MG, 2X/DAY, (ONE IN MORNING AND ONE AT NIGHT)
     Route: 048
  20. KLONOPIN [Concomitant]
     Active Substance: CLONAZEPAM
     Dosage: UNK, AS NEEDED (1.5-2 TABLET BY ORAL ROUTE EVERY DAY PRN)
     Route: 048
     Dates: start: 20180126
  21. ATORVASTATIN [Concomitant]
     Active Substance: ATORVASTATIN
     Dosage: 10 MG, DAILY, [EVERY DAY]
     Route: 048
     Dates: start: 20151111, end: 20180417
  22. COREG [Concomitant]
     Active Substance: CARVEDILOL
     Dosage: 3.125 MG, 2X/DAY, [2 TIMES EVERY DAY WITH FOOD]
     Route: 048
     Dates: start: 20180215, end: 20180417
  23. ATENOLOL. [Concomitant]
     Active Substance: ATENOLOL
     Indication: HYPERTENSION
     Dosage: 50 MG, EVERY DAY
     Route: 048
     Dates: start: 20150528, end: 20150528
  24. LIPITOR [Concomitant]
     Active Substance: ATORVASTATIN CALCIUM
     Dosage: 1 DF, DAILY
     Route: 048
     Dates: start: 20151111
  25. FLAXSEED OIL [LINUM USITATISSIMUM SEED OIL] [Concomitant]
     Active Substance: LINSEED OIL
     Dosage: 1000 MG, DAILY
     Route: 048
     Dates: start: 20121211
  26. FLUTICASONE. [Concomitant]
     Active Substance: FLUTICASONE
     Dosage: 4 DF, DAILY, SPRAY 2 SPRAY BY INTRANASAL ROUTE EVERY DAY IN EACH NOSTRIL
     Route: 045
     Dates: start: 20131009

REACTIONS (4)
  - Heart rate irregular [Recovered/Resolved]
  - Palpitations [Recovered/Resolved]
  - Extrasystoles [Recovered/Resolved]
  - Product use issue [Unknown]

NARRATIVE: CASE EVENT DATE: 201804
